FAERS Safety Report 23115898 (Version 1)
Quarter: 2023Q4

REPORT INFORMATION
  Report Type: Spontaneous
  Country: US (occurrence: US)
  Receive Date: 20231027
  Receipt Date: 20231027
  Transmission Date: 20240110
  Serious: No
  Sender: FDA-Public Use
  Company Number: US-GLAXOSMITHKLINE-USCH2023050828

PATIENT
  Age: 67 Year
  Sex: Female

DRUGS (1)
  1. NICORETTE [Suspect]
     Active Substance: NICOTINE
     Indication: Smoking cessation therapy
     Dosage: 4 MG
     Dates: start: 20231020, end: 20231022

REACTIONS (1)
  - Feeling jittery [Recovered/Resolved]

NARRATIVE: CASE EVENT DATE: 20231020
